FAERS Safety Report 23606645 (Version 3)
Quarter: 2024Q1

REPORT INFORMATION
  Report Type: Report from Study
  Country: US (occurrence: US)
  Receive Date: 20240307
  Receipt Date: 20240328
  Transmission Date: 20240410
  Serious: Yes (Other)
  Sender: FDA-Public Use
  Company Number: US-ARGENX-2023-ARGX-US004058

PATIENT

DRUGS (1)
  1. VYVGART [Suspect]
     Active Substance: EFGARTIGIMOD ALFA-FCAB
     Indication: Myasthenia gravis
     Dosage: UNK
     Route: 042

REACTIONS (6)
  - Spinal fracture [Unknown]
  - Back pain [Unknown]
  - Depression [Unknown]
  - Decreased appetite [Unknown]
  - Mobility decreased [Unknown]
  - Back pain [Unknown]

NARRATIVE: CASE EVENT DATE: 20231120
